FAERS Safety Report 15625903 (Version 1)
Quarter: 2018Q4

REPORT INFORMATION
  Report Type: Other
  Country: DE (occurrence: DE)
  Receive Date: 20181116
  Receipt Date: 20181116
  Transmission Date: 20190205
  Serious: Yes (Death, Life-Threatening, Other)
  Sender: FDA-Public Use
  Company Number: DE-ASTELLAS-2018US048618

PATIENT
  Age: 32 Year
  Sex: Female

DRUGS (28)
  1. SOBELIN                            /00166002/ [Suspect]
     Active Substance: CLINDAMYCIN HYDROCHLORIDE
     Indication: PROPHYLAXIS
     Dosage: UNK, UNKNOWN FREQ.
     Route: 042
     Dates: start: 19960606, end: 19960606
  2. ZOVIRAX [Suspect]
     Active Substance: ACYCLOVIR
     Indication: PROPHYLAXIS
     Dosage: UNK UNK, UNKNOWN FREQ.
     Route: 042
     Dates: start: 19960611, end: 19960611
  3. DIFLUCAN [Suspect]
     Active Substance: FLUCONAZOLE
     Indication: PROPHYLAXIS
     Dates: start: 19960606, end: 19960611
  4. AMPHOTERICIN B, LIPOSOME [Suspect]
     Active Substance: AMPHOTERICIN B
     Indication: PROPHYLAXIS
     Route: 055
     Dates: start: 19960106
  5. AMPHO-MORONAL [Suspect]
     Active Substance: AMPHOTERICIN B
     Dosage: UNK UNK, UNKNOWN FREQ.
     Route: 048
     Dates: start: 19960606
  6. MYLERAN [Suspect]
     Active Substance: BUSULFAN
     Indication: ACUTE PROMYELOCYTIC LEUKAEMIA
     Dosage: UNK, UNKNOWN FREQ.
     Route: 042
     Dates: start: 19960610, end: 19960613
  7. TARIVID                            /00731801/ [Suspect]
     Active Substance: OFLOXACIN
     Indication: PROPHYLAXIS
     Dosage: UNK, UNKNOWN FREQ.
     Route: 048
     Dates: start: 19960606
  8. BACTRIM [Suspect]
     Active Substance: SULFAMETHOXAZOLE\TRIMETHOPRIM
     Indication: PROPHYLAXIS
     Dosage: UNK, UNKNOWN FREQ.
     Route: 048
     Dates: start: 19960606
  9. KONAKION MM [Suspect]
     Active Substance: PHYTONADIONE
     Indication: VITAMIN K DEFICIENCY
     Dosage: UNK, UNKNOWN FREQ.
     Route: 042
     Dates: start: 19960606
  10. VANCOMYCIN [Suspect]
     Active Substance: VANCOMYCIN
     Indication: RECTAL LESION
     Dosage: UNK, UNKNOWN FREQ.
     Route: 013
     Dates: end: 19960603
  11. NACL [Concomitant]
     Active Substance: SODIUM CHLORIDE
     Indication: PRODUCT USED FOR UNKNOWN INDICATION
     Dosage: UNK UNK, UNKNOWN FREQ.
     Route: 065
     Dates: end: 19960606
  12. KCL [Concomitant]
     Active Substance: POTASSIUM CHLORIDE
     Indication: PRODUCT USED FOR UNKNOWN INDICATION
     Dosage: UNK UNK, UNKNOWN FREQ.
     Route: 065
     Dates: end: 19960606
  13. HEPARIN [Concomitant]
     Active Substance: HEPARIN SODIUM
     Indication: PRODUCT USED FOR UNKNOWN INDICATION
     Dosage: UNK UNK, UNKNOWN FREQ.
     Route: 065
     Dates: end: 19960606
  14. ZOVIRAX [Suspect]
     Active Substance: ACYCLOVIR
     Route: 048
     Dates: start: 19960606
  15. FORTUM                             /00559701/ [Suspect]
     Active Substance: CEFTAZIDIME
     Indication: PROPHYLAXIS
     Dosage: UNK, UNKNOWN FREQ.
     Route: 042
     Dates: start: 19960603
  16. GRANOCYTE [Suspect]
     Active Substance: LENOGRASTIM
     Indication: NEUTROPENIA
     Dosage: UNK, UNKNOWN FREQ.
     Route: 042
     Dates: start: 19960524, end: 19960605
  17. ZANTAC [Concomitant]
     Active Substance: RANITIDINE HYDROCHLORIDE
     Indication: PRODUCT USED FOR UNKNOWN INDICATION
     Dosage: UNK UNK, UNKNOWN FREQ.
     Route: 065
     Dates: end: 19960606
  18. METOCLOPRAMID                      /00041901/ [Concomitant]
     Active Substance: METOCLOPRAMIDE
     Indication: PRODUCT USED FOR UNKNOWN INDICATION
     Dosage: UNK UNK, UNKNOWN FREQ.
     Route: 065
     Dates: end: 19960606
  19. ANTRA                              /00661201/ [Suspect]
     Active Substance: OMEPRAZOLE
     Indication: PROPHYLAXIS
     Dosage: UNK, UNKNOWN FREQ.
     Route: 048
     Dates: start: 19960606, end: 19960606
  20. PHENHYDAN                          /00017401/ [Suspect]
     Active Substance: PHENYTOIN
     Indication: PROPHYLAXIS
     Dosage: UNK, UNKNOWN FREQ.
     Route: 048
     Dates: start: 19960609
  21. AMIKIN [Suspect]
     Active Substance: AMIKACIN SULFATE
     Indication: INFLAMMATION
     Dosage: UNK, UNKNOWN FREQ.
     Route: 042
     Dates: end: 19960603
  22. RINGERS LACTATE [Concomitant]
     Active Substance: CALCIUM CHLORIDE\POTASSIUM CHLORIDE\SODIUM LACTATE
     Indication: PRODUCT USED FOR UNKNOWN INDICATION
     Dosage: UNK UNK, UNKNOWN FREQ.
     Route: 065
     Dates: end: 19960606
  23. CLINOFEM [Concomitant]
     Indication: PRODUCT USED FOR UNKNOWN INDICATION
     Dosage: UNK UNK, UNKNOWN FREQ.
     Route: 065
     Dates: end: 19960606
  24. AMPHO-MORONAL [Suspect]
     Active Substance: AMPHOTERICIN B
     Indication: CANDIDA INFECTION
     Route: 048
     Dates: start: 19960106
  25. CLONT                              /00012501/ [Suspect]
     Active Substance: METRONIDAZOLE
     Indication: PROPHYLAXIS
     Dosage: UNK, UNKNOWN FREQ.
     Route: 042
     Dates: start: 19960606
  26. DOLANTIN [Suspect]
     Active Substance: MEPERIDINE
     Indication: PAIN
     Dosage: UNK, UNKNOWN FREQ.
     Route: 042
     Dates: start: 19960609
  27. ZOFRAN [Suspect]
     Active Substance: ONDANSETRON HYDROCHLORIDE
     Indication: NAUSEA
     Dosage: UNK, UNKNOWN FREQ.
     Route: 042
     Dates: end: 19960518
  28. LEXOTANIL [Suspect]
     Active Substance: BROMAZEPAM
     Indication: AGITATION
     Dosage: UNK, UNKNOWN FREQ.
     Route: 048

REACTIONS (3)
  - Circulatory collapse [Fatal]
  - Stevens-Johnson syndrome [Fatal]
  - Toxic epidermal necrolysis [Fatal]

NARRATIVE: CASE EVENT DATE: 19960612
